FAERS Safety Report 14442204 (Version 1)
Quarter: 2018Q1

REPORT INFORMATION
  Report Type: Spontaneous
  Country: US (occurrence: US)
  Receive Date: 20180125
  Receipt Date: 20180125
  Transmission Date: 20180509
  Serious: No
  Sender: FDA-Public Use
  Company Number: US-PFIZER INC-2018032748

PATIENT
  Age: 58 Year
  Sex: Female
  Weight: 79.37 kg

DRUGS (1)
  1. CELECOXIB. [Suspect]
     Active Substance: CELECOXIB
     Dosage: 100 MG, UNK

REACTIONS (1)
  - Abdominal pain upper [Recovered/Resolved]
